FAERS Safety Report 22110576 (Version 1)
Quarter: 2023Q1

REPORT INFORMATION
  Report Type: Spontaneous
  Country: US (occurrence: None)
  Receive Date: 20230317
  Receipt Date: 20230317
  Transmission Date: 20230418
  Serious: Yes (Other)
  Sender: FDA-Public Use
  Company Number: None

PATIENT
  Age: 37 Year
  Sex: 0
  Weight: 71.1 kg

DRUGS (1)
  1. CEFAZOLIN [Suspect]
     Active Substance: CEFAZOLIN
     Indication: Antibiotic prophylaxis
     Dosage: 2 GRAMS ONCE INTRAVENOUS BOLUS?
     Route: 040
     Dates: start: 20230314, end: 20230314

REACTIONS (5)
  - Heart rate increased [None]
  - Carbon dioxide decreased [None]
  - Oxygen saturation decreased [None]
  - Hypoventilation [None]
  - Bronchospasm [None]

NARRATIVE: CASE EVENT DATE: 20230314
